FAERS Safety Report 8914143 (Version 3)
Quarter: 2013Q1

REPORT INFORMATION
  Report Type: Spontaneous
  Country: US (occurrence: US)
  Receive Date: 20121116
  Receipt Date: 20130109
  Transmission Date: 20140127
  Serious: Yes (Hospitalization, Other)
  Sender: FDA-Public Use
  Company Number: US-ASTRAZENECA-2012SE85260

PATIENT
  Age: 64 Year
  Sex: Female

DRUGS (1)
  1. NEXIUM [Suspect]
     Route: 048

REACTIONS (10)
  - Myocardial infarction [Unknown]
  - Transient ischaemic attack [Unknown]
  - Drug intolerance [Unknown]
  - Fall [Unknown]
  - Dysarthria [Unknown]
  - Contusion [Unknown]
  - Memory impairment [Unknown]
  - Gastric disorder [Unknown]
  - Disorientation [Unknown]
  - Drug dose omission [Unknown]
